FAERS Safety Report 24302469 (Version 2)
Quarter: 2024Q3

REPORT INFORMATION
  Report Type: Spontaneous
  Country: US (occurrence: US)
  Receive Date: 20240910
  Receipt Date: 20240917
  Transmission Date: 20241017
  Serious: Yes (Hospitalization, Other)
  Sender: ADVANZ PHARMA
  Company Number: US-MLMSERVICE-20240823-PI168151-00095-1

PATIENT

DRUGS (2)
  1. HYDROXYCHLOROQUINE [Suspect]
     Active Substance: HYDROXYCHLOROQUINE
     Indication: Rheumatoid arthritis
     Dosage: UNK
  2. METHOTREXATE [Suspect]
     Active Substance: METHOTREXATE
     Indication: Rheumatoid arthritis
     Dosage: UNK

REACTIONS (6)
  - Urogenital fistula [Recovered/Resolved]
  - Urinary incontinence [Recovered/Resolved]
  - Haematuria [Recovered/Resolved]
  - Vulvovaginal inflammation [Recovered/Resolved]
  - Vaginal fistula [Recovered/Resolved]
  - Vaginal haemorrhage [Recovered/Resolved]
